FAERS Safety Report 22757312 (Version 5)
Quarter: 2024Q1

REPORT INFORMATION
  Report Type: Spontaneous
  Country: DE (occurrence: DE)
  Receive Date: 20230727
  Receipt Date: 20240219
  Transmission Date: 20240409
  Serious: Yes (Hospitalization, Other)
  Sender: FDA-Public Use
  Company Number: DE-SAMSUNG BIOEPIS-SB-2023-19049

PATIENT
  Age: 48 Year
  Sex: Male
  Weight: 72 kg

DRUGS (19)
  1. LEUCOVORIN [Suspect]
     Active Substance: LEUCOVORIN\LEUCOVORIN CALCIUM
     Indication: Oesophageal adenocarcinoma
     Dosage: 200 MG/M2, IV, D1/D15/D29 AND D43 PRE-AND POST OP;?FOA: UNKNOWN
     Route: 042
     Dates: start: 20230526, end: 20231227
  2. LEUCOVORIN [Suspect]
     Active Substance: LEUCOVORIN\LEUCOVORIN CALCIUM
     Dosage: 200 MG/M2, IV, D1/D15/D29 AND D43 PRE- AND POST OP?ROA: INTRAVENOUS
     Dates: start: 20230526, end: 20231205
  3. LEUCOVORIN [Suspect]
     Active Substance: LEUCOVORIN\LEUCOVORIN CALCIUM
     Dosage: 200 MG/M2, IV, D1/D15/D29 AND D43 PRE- AND POST OP?ROA: INTRAVENOUS
     Dates: start: 20230526, end: 20230626
  4. OXALIPLATIN [Suspect]
     Active Substance: OXALIPLATIN
     Indication: Oesophageal adenocarcinoma
     Dosage: 85 MG/M2, IV, D1/D15/D29 AND D43 PRE-AND POST OP?FOA: UNKNOWN
     Route: 042
     Dates: start: 20230526, end: 20231227
  5. OXALIPLATIN [Suspect]
     Active Substance: OXALIPLATIN
     Dosage: 85 MG/M2, IV D1/D15/D29 AND D43 PRE AND POST OP?127 MG?INTRAVENOUS?ROA-20045000
     Dates: start: 20230526, end: 20230626
  6. OXALIPLATIN [Suspect]
     Active Substance: OXALIPLATIN
     Dosage: 85 MG/M2, IV D1/D15/D29 AND D43 PRE AND POST OP 127 MG INTRAVENOUS ROA-20045000
     Dates: start: 20230526, end: 20231205
  7. DOCETAXEL [Suspect]
     Active Substance: DOCETAXEL\DOCETAXEL ANHYDROUS
     Indication: Oesophageal adenocarcinoma
     Dosage: 50 MG/M2, IV, D1/D15/D29 AND D43 PRE-AND POST OP?FOA: UNKNOWN
     Route: 042
     Dates: start: 20230526, end: 20231114
  8. DOCETAXEL [Suspect]
     Active Substance: DOCETAXEL\DOCETAXEL ANHYDROUS
     Dosage: ROA: IV
     Dates: start: 20230526, end: 20230626
  9. PEMBROLIZUMAB [Suspect]
     Active Substance: PEMBROLIZUMAB
     Indication: Oesophageal adenocarcinoma
     Dosage: ROA: INTRAVENOUS?FOA: UNKNOWN
     Route: 042
     Dates: end: 20240110
  10. PEMBROLIZUMAB [Suspect]
     Active Substance: PEMBROLIZUMAB
     Dosage: 200 MG FLAT DOSE, IV; D1/D22/D43 PRE-AND POST OP, AFTERWARDS D1 Q3W?FOA: UNKNOWN
     Route: 042
     Dates: start: 20230526, end: 20231212
  11. PEMBROLIZUMAB [Suspect]
     Active Substance: PEMBROLIZUMAB
     Dosage: DOSE: 200 (UNIT UNSPECIFIED)?ROA: INTRAVENOUS
     Dates: start: 20230526, end: 20230616
  12. FLUOROURACIL [Suspect]
     Active Substance: FLUOROURACIL
     Indication: Oesophageal adenocarcinoma
     Dosage: 2600 MG/M2, IV, D1/D15/D29 AND D43 PRE- AND POST OP, INTRAVENOUS
     Dates: start: 20230526, end: 20231205
  13. FLUOROURACIL [Suspect]
     Active Substance: FLUOROURACIL
     Dosage: 2600 MG/M2, IV, D1/D15/D29 AND D43 PRE- AND POST OP?ROA-20045000, INTRAVENOUS
     Dates: start: 20230526, end: 20230526
  14. FLUOROURACIL [Suspect]
     Active Substance: FLUOROURACIL
     Dosage: 2600 MG/M2, IV, D1/D15/D29 AND D43 PRE- AND POST OP?ROA-20045000, INTRAVENOUS?FOA: UNKNOWN
     Dates: start: 20230526, end: 20231227
  15. ONTRUZANT [Suspect]
     Active Substance: TRASTUZUMAB-DTTB
     Indication: Oesophageal adenocarcinoma
     Dosage: D1: 8 MG/KG, IV; 6 MG/KG IV D22/D43 PRE-AND POST OP AFTERWARDS 6 MG/KG IV DT Q3W?ROA-20045000, INRAE
     Dates: start: 20230526, end: 20231212
  16. ONTRUZANT [Suspect]
     Active Substance: TRASTUZUMAB-DTTB
     Dosage: D1: 8 MG/KG, IV; 6 MG/KG IV D22/D43 PRE-AND POST OP AFTERWARDS 6 MG/KG IV DT Q3W?ROA-20045000, INRAE
     Dates: start: 20230526, end: 20230616
  17. ONTRUZANT [Suspect]
     Active Substance: TRASTUZUMAB-DTTB
     Dosage: AFTERWARDS 6 MG/KG IV D1 Q3W?ROA-20045000, INTRAVENOUS?FOA: UNKNOWN
     Dates: end: 20240110
  18. ONTRUZANT [Suspect]
     Active Substance: TRASTUZUMAB-DTTB
     Dosage: D1: 8 MG/KG, IV, INTRAVENOUS-ROA?FOA: UNKNOWN
     Dates: start: 20230526
  19. ONTRUZANT [Suspect]
     Active Substance: TRASTUZUMAB-DTTB
     Dosage: 6 MG/KG IV D22/D43 PRE-AND POST OP, AFTERWARDS 6 MG/KG IV D1 Q3W?ROA-20045000, INTRAVENOUS?FOA: UNKN

REACTIONS (9)
  - Febrile neutropenia [Recovered/Resolved]
  - Erythema [Recovered/Resolved]
  - Dysphagia [Recovered/Resolved]
  - Sepsis [Unknown]
  - Acute kidney injury [Unknown]
  - Product use in unapproved indication [Unknown]
  - Tachycardia [Unknown]
  - Conjunctivitis [Unknown]
  - Rash [Unknown]

NARRATIVE: CASE EVENT DATE: 20230710
